FAERS Safety Report 4599870-6 (Version None)
Quarter: 2005Q1

REPORT INFORMATION
  Report Type: 
  Country: None (occurrence: None)
  Receive Date: 20050303
  Receipt Date: 20050217
  Transmission Date: 20050727
  Serious: Yes (Other)
  Sender: FDA-Public Use
  Company Number: CIP04001352

PATIENT
  Age: 71 Year
  Sex: Female

DRUGS (2)
  1. ACTONEL [Suspect]
     Indication: OSTEOPOROSIS
     Dosage: 35 MG, 1/WEEK, ORAL
     Route: 048
     Dates: start: 20040517, end: 20040531
  2. KESSAR              (TAMOXIFEN CITRATE) [Concomitant]

REACTIONS (2)
  - DIPLOPIA [None]
  - VISUAL DISTURBANCE [None]
